FAERS Safety Report 8587202-8 (Version None)
Quarter: 2012Q3

REPORT INFORMATION
  Report Type: 
  Country: None (occurrence: None)
  Receive Date: 20120810
  Receipt Date: 20110318
  Transmission Date: 20120928
  Serious: Yes (Other)
  Sender: FDA-Public Use
  Company Number: US-ASTRAZENECA-2011SE15473

PATIENT

DRUGS (2)
  1. ARIMIDEX [Suspect]
     Route: 048
  2. AROMASIN [Suspect]
     Route: 065

REACTIONS (3)
  - DYSPNOEA [None]
  - COUGH [None]
  - BRONCHITIS [None]
